FAERS Safety Report 6484801-4 (Version None)
Quarter: 2009Q4

REPORT INFORMATION
  Report Type: 
  Country: None (occurrence: None)
  Receive Date: 20091209
  Receipt Date: 20090402
  Transmission Date: 20100525
  Serious: No
  Sender: FDA-Public Use
  Company Number: A0776854A

PATIENT
  Sex: Male

DRUGS (4)
  1. AVANDAMET [Suspect]
     Dosage: 1TAB TWICE PER DAY
     Route: 048
     Dates: start: 20090301
  2. ZOCOR [Concomitant]
  3. COZAAR [Concomitant]
  4. CRESTOR [Concomitant]

REACTIONS (4)
  - HYPOKINESIA [None]
  - PRURITUS [None]
  - RASH ERYTHEMATOUS [None]
  - SOMNOLENCE [None]
